FAERS Safety Report 9511125 (Version 1)
Quarter: 2013Q1

REPORT INFORMATION
  Report Type: Spontaneous
  Country: US (occurrence: None)
  Receive Date: 20130305
  Receipt Date: 20130305
  Transmission Date: 20140127
  Serious: Yes (Disabling, Other)
  Sender: FDA-Public Use
  Company Number: 163-21880-12022710

PATIENT
  Age: 71 Year
  Sex: Female

DRUGS (7)
  1. REVLIMID [Suspect]
     Indication: PLASMA CELL MYELOMA
     Dosage: 25 MG, DAILY FOR 21 DAYS, PO
     Route: 048
     Dates: start: 200808
  2. ASPIRIN [Concomitant]
  3. CALCIUM (CALCIUM) [Concomitant]
  4. VITAMIN D (ERGOCALCIFEROL) [Concomitant]
  5. VITAMINS [Concomitant]
  6. RANITIDINE HCL (RANITIDINE HYDROCHLORIDE) [Concomitant]
  7. ZOMETA (ZOLEDRONIC ACID) (INJECTION FOR INFUSION) [Concomitant]

REACTIONS (1)
  - Pleural effusion [None]
